FAERS Safety Report 20539852 (Version 1)
Quarter: 2022Q1

REPORT INFORMATION
  Report Type: Spontaneous
  Country: CN (occurrence: CN)
  Receive Date: 20220302
  Receipt Date: 20220302
  Transmission Date: 20220423
  Serious: Yes (Life-Threatening)
  Sender: FDA-Public Use
  Company Number: CN-BAYER-2021A243483

PATIENT
  Age: 56 Year
  Sex: Male
  Weight: 90 kg

DRUGS (1)
  1. XARELTO [Suspect]
     Active Substance: RIVAROXABAN
     Indication: Cerebral haemorrhage
     Dosage: 10 MG, QD
     Route: 048
     Dates: start: 20210303, end: 20211010

REACTIONS (6)
  - Pericardial effusion [Recovering/Resolving]
  - Haemothorax [Recovering/Resolving]
  - Blood pressure decreased [Unknown]
  - Oxygen saturation decreased [Unknown]
  - Incorrect route of product administration [Unknown]
  - Off label use [Unknown]

NARRATIVE: CASE EVENT DATE: 20210303
